FAERS Safety Report 12268934 (Version 1)
Quarter: 2016Q2

REPORT INFORMATION
  Report Type: Spontaneous
  Country: US (occurrence: US)
  Receive Date: 20160414
  Receipt Date: 20160414
  Transmission Date: 20160815
  Serious: Yes (Death, Other)
  Sender: FDA-Public Use
  Company Number: US-PFIZER INC-2016208208

PATIENT
  Sex: Male

DRUGS (1)
  1. VIAGRA [Suspect]
     Active Substance: SILDENAFIL CITRATE
     Indication: ERECTILE DYSFUNCTION
     Dosage: UNK (REGULARLY)
     Route: 048
     Dates: start: 200301, end: 200502

REACTIONS (5)
  - Metastatic malignant melanoma [Fatal]
  - Superficial spreading melanoma stage unspecified [Unknown]
  - Lentigo maligna [Unknown]
  - Malignant melanoma [Unknown]
  - Respiratory arrest [Fatal]

NARRATIVE: CASE EVENT DATE: 20030331
